FAERS Safety Report 24444519 (Version 1)
Quarter: 2024Q4

REPORT INFORMATION
  Report Type: Spontaneous
  Country: IN (occurrence: IN)
  Receive Date: 20241016
  Receipt Date: 20241016
  Transmission Date: 20250115
  Serious: Yes (Other)
  Sender: SANOFI AVENTIS
  Company Number: IN-SA-2024SA292898

PATIENT
  Age: 47 Year
  Sex: Female

DRUGS (2)
  1. DOCETAXEL [Suspect]
     Active Substance: DOCETAXEL
     Indication: Breast cancer
     Dosage: 135 MG, INFUSION/INJECTION
     Route: 041
  2. DOCETAXEL [Suspect]
     Active Substance: DOCETAXEL
     Dosage: SUBSEQUENT INFUSIONS WERE ADMINISTERED
     Route: 041

REACTIONS (6)
  - Injection site vesicles [Recovered/Resolved]
  - Injection site pruritus [Recovered/Resolved]
  - Skin lesion [Recovered/Resolved]
  - Blister [Recovered/Resolved]
  - Epidermal necrosis [Recovered/Resolved]
  - Injection site erythema [Recovered/Resolved]
